FAERS Safety Report 6278197-0 (Version None)
Quarter: 2009Q3

REPORT INFORMATION
  Report Type: 
  Country: None (occurrence: None)
  Receive Date: 20090722
  Receipt Date: 20090709
  Transmission Date: 20100115
  Serious: Yes (Other)
  Sender: FDA-Public Use
  Company Number: GB-MYLANLABS-2009S1012231

PATIENT
  Age: 44 Year
  Sex: Female

DRUGS (6)
  1. AZATHIOPRINE [Suspect]
     Indication: MUSCLE NECROSIS
  2. CYCLOPHOSPHAMIDE [Suspect]
     Indication: B-LYMPHOCYTE COUNT DECREASED
     Route: 042
  3. METHOTREXATE [Suspect]
     Indication: MUSCLE NECROSIS
  4. METHYLPREDNISOLONE [Suspect]
     Indication: B-LYMPHOCYTE COUNT DECREASED
  5. PREDNISOLONE [Suspect]
     Indication: MUSCLE NECROSIS
  6. RITUXIMAB [Suspect]
     Indication: B-LYMPHOCYTE COUNT DECREASED

REACTIONS (3)
  - ASTHENIA [None]
  - BLOOD CREATINE PHOSPHOKINASE INCREASED [None]
  - HERPES ZOSTER [None]
